FAERS Safety Report 18792375 (Version 1)
Quarter: 2021Q1

REPORT INFORMATION
  Report Type: Report from Study
  Country: None (occurrence: US)
  Receive Date: 20210127
  Receipt Date: 20210127
  Transmission Date: 20210419
  Serious: Yes (Hospitalization)
  Sender: FDA-Public Use
  Company Number: US-ABBVIE-20K-163-3704184-00

PATIENT
  Sex: Female
  Weight: 104.42 kg

DRUGS (7)
  1. CHANTIX [Concomitant]
     Active Substance: VARENICLINE TARTRATE
     Indication: EX-TOBACCO USER
  2. LYRICA [Concomitant]
     Active Substance: PREGABALIN
     Indication: FIBROMYALGIA
  3. HUMIRA [Suspect]
     Active Substance: ADALIMUMAB
     Dosage: CITRATE FREE
     Route: 058
     Dates: start: 20210105
  4. CELEBREX [Concomitant]
     Active Substance: CELECOXIB
     Indication: INFLAMMATION
  5. HUMIRA [Suspect]
     Active Substance: ADALIMUMAB
     Indication: RHEUMATOID ARTHRITIS
     Dosage: CITRATE FREE
     Route: 058
     Dates: start: 2019, end: 20201203
  6. PROTONIX [Concomitant]
     Active Substance: PANTOPRAZOLE SODIUM
     Indication: GASTROOESOPHAGEAL REFLUX DISEASE
  7. BABY ASPIRIN [Concomitant]
     Active Substance: ASPIRIN
     Indication: ANTICOAGULANT THERAPY

REACTIONS (1)
  - Meniscus injury [Recovered/Resolved]

NARRATIVE: CASE EVENT DATE: 2020
